FAERS Safety Report 5949240-0 (Version None)
Quarter: 2008Q4

REPORT INFORMATION
  Report Type: 
  Country: None (occurrence: None)
  Receive Date: 20081111
  Receipt Date: 20081104
  Transmission Date: 20090506
  Serious: Yes (Hospitalization)
  Sender: FDA-Public Use
  Company Number: US-GENENTECH-270105

PATIENT
  Sex: Female
  Weight: 64.399 kg

DRUGS (16)
  1. BEVACIZUMAB [Suspect]
     Indication: NON-SMALL CELL LUNG CANCER
     Dosage: 10 MG/KG, Q2W
     Route: 042
     Dates: start: 20080722
  2. ALIMTA [Suspect]
     Indication: NON-SMALL CELL LUNG CANCER
     Dosage: 500 MG/M2, Q2W
     Route: 042
     Dates: start: 20080722
  3. GEMZAR [Suspect]
     Indication: NON-SMALL CELL LUNG CANCER
     Dosage: 1500 MG/M2, UNK
     Route: 042
     Dates: start: 20080722
  4. XANAX [Concomitant]
     Indication: ANXIETY
     Dosage: 25 MG, PRN
  5. LORTAB [Concomitant]
     Indication: PAIN
     Dosage: 5 MG, PRN
     Route: 048
  6. PROTONIX [Concomitant]
     Indication: DRUG USE FOR UNKNOWN INDICATION
     Dosage: 40 MG, QD
     Route: 048
  7. LEVAQUIN [Concomitant]
     Indication: PNEUMONIA
     Dosage: 500 MG, QD
  8. PERCOCET [Concomitant]
     Indication: PAIN
     Dosage: 25 MG, PRN
     Route: 048
  9. PHENERGAN HCL [Concomitant]
     Indication: NAUSEA
     Dosage: 25 MG, PRN
     Route: 048
  10. ZOFRAN [Concomitant]
     Indication: NAUSEA
     Dosage: 8 MG, Q8H
     Route: 048
  11. OXYCONTIN [Concomitant]
     Indication: PAIN
     Dosage: 10 MG, Q12H
     Route: 048
  12. K-DUR [Concomitant]
     Indication: DRUG USE FOR UNKNOWN INDICATION
     Dosage: 20 MG, BID
     Route: 048
  13. FOLIC ACID [Concomitant]
     Indication: DRUG USE FOR UNKNOWN INDICATION
     Dosage: 1 MG, QD
     Route: 048
  14. VITAMIN B-12 [Concomitant]
     Indication: DRUG USE FOR UNKNOWN INDICATION
     Dosage: 1000 A?G, UNK
     Route: 030
  15. DEXAMETHASONE [Concomitant]
     Indication: DRUG USE FOR UNKNOWN INDICATION
     Dosage: 4 MG, BID
  16. ANZEMET [Concomitant]
     Indication: DRUG USE FOR UNKNOWN INDICATION
     Dosage: 100 MG, UNK
     Route: 042

REACTIONS (2)
  - GASTROENTERITIS [None]
  - PNEUMONIA [None]
